FAERS Safety Report 6914025-5 (Version None)
Quarter: 2010Q3

REPORT INFORMATION
  Report Type: 
  Country: None (occurrence: None)
  Receive Date: 20100809
  Receipt Date: 20100727
  Transmission Date: 20110219
  Serious: Yes (Other)
  Sender: FDA-Public Use
  Company Number: PHHY2010US18070

PATIENT
  Sex: Female

DRUGS (5)
  1. DIOVAN [Suspect]
     Dosage: 160 MG
  2. DIOVAN [Suspect]
     Dosage: 2 DF, UNK
  3. VALTURNA [Suspect]
     Dosage: 150/160 MG
     Dates: start: 20100401
  4. LEXAPRO [Concomitant]
  5. LORAZEPAM [Concomitant]

REACTIONS (9)
  - ALOPECIA [None]
  - BLOOD PRESSURE FLUCTUATION [None]
  - DIZZINESS [None]
  - DRUG INTOLERANCE [None]
  - HEADACHE [None]
  - INJURY [None]
  - LOSS OF CONSCIOUSNESS [None]
  - NAUSEA [None]
  - SKIN DISORDER [None]
